FAERS Safety Report 8824647 (Version 1)
Quarter: 2012Q4

REPORT INFORMATION
  Report Type: 
  Country: US (occurrence: US)
  Receive Date: 20121004
  Receipt Date: 20121004
  Transmission Date: 20130627
  Serious: Yes (Death, Hospitalization, Other)
  Sender: FDA-Public Use
  Company Number: PHEH2011US01054

PATIENT
  Sex: Female

DRUGS (5)
  1. GLEEVEC [Suspect]
     Indication: CHRONIC MYELOID LEUKAEMIA
     Dosage: 400 mg, daily
     Route: 048
     Dates: start: 20100203
  2. GLEEVEC [Suspect]
     Dosage: 400 mg, daily
     Route: 048
     Dates: start: 20120203
  3. GLEEVEC [Suspect]
     Dosage: 400 mg, QD
     Route: 048
     Dates: start: 20120128
  4. GLEEVEC [Suspect]
     Dosage: 400 mg, daily
     Route: 048
     Dates: start: 20120206
  5. PLAVIX [Concomitant]

REACTIONS (7)
  - Pneumonia [Fatal]
  - Red blood cell count decreased [Unknown]
  - Anaemia [Unknown]
  - Vascular occlusion [Unknown]
  - Skin ulcer [Unknown]
  - Impaired healing [Unknown]
  - Pruritus [Not Recovered/Not Resolved]
